FAERS Safety Report 21904794 (Version 1)
Quarter: 2023Q1

REPORT INFORMATION
  Report Type: Spontaneous
  Country: US (occurrence: US)
  Receive Date: 20230124
  Receipt Date: 20230124
  Transmission Date: 20230417
  Serious: Yes (Other)
  Sender: FDA-Public Use
  Company Number: US-ELI_LILLY_AND_COMPANY-US202301005529

PATIENT
  Sex: Female

DRUGS (2)
  1. HUMULIN N [Suspect]
     Active Substance: INSULIN HUMAN
     Indication: Diabetes mellitus
     Dosage: UNK UNK, PRN
     Route: 058
     Dates: start: 1966
  2. HUMULIN N [Suspect]
     Active Substance: INSULIN HUMAN
     Dosage: 24 U, PRN (DAILY)
     Route: 058

REACTIONS (4)
  - Gait inability [Unknown]
  - Movement disorder [Unknown]
  - Blood glucose increased [Unknown]
  - Negative thoughts [Unknown]

NARRATIVE: CASE EVENT DATE: 20210101
